FAERS Safety Report 7474006-2 (Version None)
Quarter: 2011Q2

REPORT INFORMATION
  Report Type: 
  Country: None (occurrence: None)
  Receive Date: 20110511
  Receipt Date: 20100108
  Transmission Date: 20111010
  Serious: Yes (Death, Hospitalization, Other)
  Sender: FDA-Public Use
  Company Number: US-BAYER-201010403NA

PATIENT
  Age: 59 Year
  Sex: Male
  Weight: 66.667 kg

DRUGS (21)
  1. TRASYLOL [Suspect]
     Indication: CORONARY ARTERY BYPASS
     Dosage: 200 ML PUMP PRIME THEN CONTINUOUS DRIP
     Route: 042
     Dates: start: 20070501, end: 20070501
  2. METOPROLOL TARTRATE [Concomitant]
     Dosage: 50 MG, UNK
     Route: 048
     Dates: start: 20070428
  3. VERSED [Concomitant]
     Dosage: 2.5 MG, UNK
     Route: 042
     Dates: start: 20070429, end: 20070429
  4. NITROGLYCERIN [Concomitant]
     Dosage: 0.4 MG, UNK
     Route: 060
     Dates: start: 20070428
  5. ACETAMINOPHEN [Concomitant]
     Dosage: 650 MG, UNK
     Route: 048
     Dates: start: 20070428
  6. ANCEF [Concomitant]
     Dosage: 2 G, UNK
     Route: 042
     Dates: start: 20070501
  7. VASOPRESSIN [VASOPRESSIN] [Concomitant]
     Dosage: 9 MG, UNK
     Route: 042
     Dates: start: 20070501
  8. VANCOMYCIN [Concomitant]
     Dosage: UNK
     Dates: start: 20070501
  9. ALBUMEN [Concomitant]
     Dosage: 100 ML, UNK
     Route: 042
     Dates: start: 20070501
  10. HEPARIN [Concomitant]
     Dosage: 45,000 UNITS
     Route: 042
     Dates: start: 20070501
  11. LIDOCAINE [Concomitant]
     Dosage: 100 MG, UNK
     Route: 042
     Dates: start: 20070501
  12. PROTAMINE SULFATE [Concomitant]
     Dosage: 250 MG, UNK
     Route: 042
     Dates: start: 20070501
  13. HEPARIN [Concomitant]
     Dosage: 4000 U, UNK
     Route: 042
     Dates: start: 20070429, end: 20070429
  14. ROCURONIUM [Concomitant]
     Dosage: 8 MG, UNK
     Route: 042
     Dates: start: 20070501
  15. TRASYLOL [Suspect]
     Indication: AORTIC VALVE REPLACEMENT
     Dosage: 1 ML TEST DOSE
     Dates: start: 20070501, end: 20070501
  16. ACETYLSALICYLIC ACID SRT [Concomitant]
     Dosage: 325 MG, UNK
     Route: 048
     Dates: start: 20070428
  17. IBUPROFEN [Concomitant]
     Dosage: 600 MG, UNK
     Route: 048
     Dates: start: 20070428
  18. CRESTOR [Concomitant]
     Dosage: 10 MG, UNK
     Route: 048
     Dates: start: 20070428
  19. LISINOPRIL [Concomitant]
     Dosage: 10 MG, UNK
     Route: 048
     Dates: start: 20070428
  20. DOPAMINE HCL [Concomitant]
     Dosage: UNK
     Route: 042
     Dates: start: 20070501
  21. EPINEPHRINE [Concomitant]
     Dosage: UNK
     Route: 042
     Dates: start: 20070501

REACTIONS (12)
  - UNEVALUABLE EVENT [None]
  - ANXIETY [None]
  - FEAR [None]
  - PAIN [None]
  - ANHEDONIA [None]
  - DEATH [None]
  - EMOTIONAL DISTRESS [None]
  - INJURY [None]
  - RENAL IMPAIRMENT [None]
  - RENAL INJURY [None]
  - RENAL FAILURE [None]
  - STRESS [None]
